FAERS Safety Report 12902571 (Version 1)
Quarter: 2016Q4

REPORT INFORMATION
  Report Type: Spontaneous
  Country: US (occurrence: US)
  Receive Date: 20161101
  Receipt Date: 20161101
  Transmission Date: 20170207
  Serious: Yes (Other)
  Sender: FDA-Public Use
  Company Number: None

PATIENT
  Age: 18 Year
  Sex: Male
  Weight: 72 kg

DRUGS (1)
  1. BUPROPN HCL [Suspect]
     Active Substance: BUPROPION HYDROCHLORIDE
     Indication: ATTENTION DEFICIT/HYPERACTIVITY DISORDER
     Dosage: ?          QUANTITY:1 TABLET(S);?
     Route: 048
     Dates: start: 20160911, end: 20160918

REACTIONS (6)
  - Insomnia [None]
  - Emotional disorder [None]
  - Anger [None]
  - Headache [None]
  - Migraine [None]
  - Anxiety [None]

NARRATIVE: CASE EVENT DATE: 20160916
